FAERS Safety Report 21743772 (Version 1)
Quarter: 2022Q4

REPORT INFORMATION
  Report Type: Report from Study
  Country: US (occurrence: US)
  Receive Date: 20221217
  Receipt Date: 20221217
  Transmission Date: 20230113
  Serious: Yes (Hospitalization)
  Sender: FDA-Public Use
  Company Number: US-ABBVIE-4233145

PATIENT
  Sex: Female

DRUGS (1)
  1. IMBRUVICA [Suspect]
     Active Substance: IBRUTINIB
     Indication: Chronic lymphocytic leukaemia
     Route: 048
     Dates: start: 20220904, end: 20221125

REACTIONS (3)
  - Renal cyst [Recovering/Resolving]
  - Renal cyst ruptured [Recovering/Resolving]
  - Renal cyst haemorrhage [Recovering/Resolving]
